FAERS Safety Report 17413534 (Version 1)
Quarter: 2020Q1

REPORT INFORMATION
  Report Type: Spontaneous
  Country: US (occurrence: US)
  Receive Date: 20200213
  Receipt Date: 20200213
  Transmission Date: 20200409
  Serious: Yes (Hospitalization)
  Sender: FDA-Public Use
  Company Number: None

PATIENT
  Age: 61 Year
  Sex: Female

DRUGS (8)
  1. FLUTICASONE. [Concomitant]
     Active Substance: FLUTICASONE
     Dates: start: 20190919
  2. TIZANIDINE. [Concomitant]
     Active Substance: TIZANIDINE
     Dates: start: 20191217
  3. MOVANTIK [Concomitant]
     Active Substance: NALOXEGOL OXALATE
     Dates: start: 20191223
  4. AZELASTINE. [Concomitant]
     Active Substance: AZELASTINE HYDROCHLORIDE
     Dates: start: 20200114
  5. HUMIRA [Suspect]
     Active Substance: ADALIMUMAB
     Indication: ARTHRITIS
     Dosage: ?          OTHER FREQUENCY:ONCE EVERY 2 WEEKS;?
     Route: 058
     Dates: start: 20190719
  6. GABAPENTIN. [Concomitant]
     Active Substance: GABAPENTIN
     Dates: start: 20200112
  7. PROMETHAZINE [Concomitant]
     Active Substance: PROMETHAZINE HYDROCHLORIDE
     Dates: start: 20200204
  8. HYDROCO/APAP [Concomitant]
     Active Substance: ACETAMINOPHEN\HYDROCODONE
     Dates: start: 20191218

REACTIONS (1)
  - Post procedural complication [None]
